FAERS Safety Report 9354737 (Version 2)
Quarter: 2013Q3

REPORT INFORMATION
  Report Type: Spontaneous
  Country: CA (occurrence: CA)
  Receive Date: 20130619
  Receipt Date: 20130709
  Transmission Date: 20140515
  Serious: Yes (Other)
  Sender: FDA-Public Use
  Company Number: CA-AMGEN-CANSP2013042180

PATIENT
  Age: 64 Year
  Sex: Male
  Weight: 57 kg

DRUGS (8)
  1. ARANESP [Suspect]
     Indication: HAEMOGLOBIN DECREASED
     Dosage: 40 MUG, QWK
     Route: 058
     Dates: start: 201004
  2. ASPIRIN [Concomitant]
  3. CALCIUM [Concomitant]
     Dosage: UNK UNK, TID
  4. IRON                               /00023503/ [Concomitant]
  5. FUROSEMIDE [Concomitant]
     Dosage: UNK UNK, BID
  6. PLAVIX [Concomitant]
  7. GLUCONORM                          /00082702/ [Concomitant]
     Dosage: UNK UNK, TID
  8. REPLAVITE                          /00058902/ [Concomitant]
     Dosage: UNK UNK, QD

REACTIONS (1)
  - Haemoglobin abnormal [Unknown]
